FAERS Safety Report 17815703 (Version 1)
Quarter: 2020Q2

REPORT INFORMATION
  Report Type: Spontaneous
  Country: IR (occurrence: IR)
  Receive Date: 20200522
  Receipt Date: 20200522
  Transmission Date: 20200714
  Serious: Yes (Other)
  Sender: FDA-Public Use
  Company Number: NVSC2020IR128296

PATIENT
  Age: 24 Year
  Sex: Female

DRUGS (1)
  1. CYCLOSPORINE. [Suspect]
     Active Substance: CYCLOSPORINE
     Indication: PROPHYLAXIS
     Dosage: UNK
     Route: 065

REACTIONS (1)
  - Toxicity to various agents [Unknown]
